FAERS Safety Report 9806486 (Version 2)
Quarter: 2014Q1

REPORT INFORMATION
  Report Type: Report from Study
  Country: US (occurrence: US)
  Receive Date: 20140109
  Receipt Date: 20140116
  Transmission Date: 20141002
  Serious: Yes (Hospitalization)
  Sender: FDA-Public Use
  Company Number: US-CELGENEUS-163-C5013-13125383

PATIENT
  Age: 78 Year
  Sex: Male
  Weight: 72 kg

DRUGS (73)
  1. AZACITIDINE INJECTABLE [Suspect]
     Indication: ACUTE MYELOID LEUKAEMIA
     Dosage: 75 MILLIGRAM/SQ. METER
     Route: 058
     Dates: start: 20131028, end: 20131103
  2. AZACITIDINE INJECTABLE [Suspect]
     Dosage: 75 MILLIGRAM/SQ. METER
     Route: 058
     Dates: start: 20131226, end: 20140101
  3. POTASSIUM CHLORIDE [Concomitant]
     Indication: PROPHYLAXIS
     Dosage: 40 MILLIEQUIVALENTS
     Route: 048
     Dates: start: 20131110, end: 20131110
  4. ALBUTEROL HFA [Concomitant]
     Indication: CHRONIC OBSTRUCTIVE PULMONARY DISEASE
     Dosage: 2 PUFFS
     Route: 048
     Dates: start: 2005
  5. ALBUTEROL HFA [Concomitant]
     Dosage: 2.5 MILLIGRAM
     Route: 055
     Dates: start: 20131109, end: 20131109
  6. FLUTICASONE-SALMETEROL [Concomitant]
     Indication: CHRONIC OBSTRUCTIVE PULMONARY DISEASE
     Dosage: 1 PUFF
     Route: 048
     Dates: start: 2005
  7. IPRATROPIUM [Concomitant]
     Indication: CHRONIC OBSTRUCTIVE PULMONARY DISEASE
     Dosage: 2 PUFFS
     Route: 048
     Dates: start: 2005
  8. IPRATROPIUM [Concomitant]
     Dosage: 500 MICROGRAM
     Route: 055
     Dates: start: 20131109, end: 20131109
  9. LEVOTHYROXINE SODIUM [Concomitant]
     Indication: HYPOTHYROIDISM
     Dosage: 125 MICROGRAM
     Route: 048
     Dates: start: 1998
  10. OMEPRAZOLE [Concomitant]
     Indication: HAEMORRHAGE PROPHYLAXIS
     Dosage: 40 MILLIGRAM
     Route: 048
     Dates: start: 20130927
  11. SUCRALFATE [Concomitant]
     Indication: HAEMORRHAGE PROPHYLAXIS
     Dosage: 1 GRAM
     Route: 048
     Dates: start: 20130927
  12. TAMSULOSIN [Concomitant]
     Indication: BENIGN PROSTATIC HYPERPLASIA
     Dosage: .4 MILLIGRAM
     Route: 048
     Dates: start: 2005
  13. SIMVASTATIN [Concomitant]
     Indication: HYPERLIPIDAEMIA
     Dosage: 20 MILLIGRAM
     Route: 048
     Dates: start: 1998
  14. ONDANSETRON [Concomitant]
     Indication: PROPHYLAXIS OF NAUSEA AND VOMITING
     Dosage: 16 MILLIGRAM
     Route: 048
     Dates: start: 20131028, end: 20131031
  15. ONDANSETRON [Concomitant]
     Route: 048
     Dates: start: 20131029
  16. ONDANSETRON [Concomitant]
     Dosage: 8 MILLIGRAM
     Route: 048
     Dates: start: 20131101, end: 20131103
  17. ONDANSETRON [Concomitant]
     Dosage: 8 MILLIGRAM
     Route: 048
     Dates: start: 20131125, end: 20131201
  18. ONDANSETRON [Concomitant]
     Dosage: 8 MILLIGRAM
     Route: 048
     Dates: start: 20131226
  19. ACETAMINOPHEN [Concomitant]
     Indication: PREMEDICATION
     Dosage: 650 MILLIGRAM
     Route: 048
     Dates: start: 20131103, end: 20131103
  20. ACETAMINOPHEN [Concomitant]
     Dosage: 650 MILLIGRAM
     Route: 048
     Dates: start: 20131114, end: 20131114
  21. ACETAMINOPHEN [Concomitant]
     Dosage: 650 MILLIGRAM
     Route: 048
     Dates: start: 20131129, end: 20131129
  22. ACETAMINOPHEN [Concomitant]
     Dosage: 650 MILLIGRAM
     Route: 048
     Dates: start: 20131202, end: 20131202
  23. ACETAMINOPHEN [Concomitant]
     Dosage: 650 MILLIGRAM
     Route: 048
     Dates: start: 20131205, end: 20131205
  24. ACETAMINOPHEN [Concomitant]
     Dosage: 650 MILLIGRAM
     Route: 048
     Dates: start: 20131209, end: 20131209
  25. ACETAMINOPHEN [Concomitant]
     Dosage: 650 MILLIGRAM
     Route: 048
     Dates: start: 20131212, end: 20131212
  26. ACETAMINOPHEN [Concomitant]
     Dosage: 650 MILLIGRAM
     Route: 048
     Dates: start: 20131216, end: 20131216
  27. ACETAMINOPHEN [Concomitant]
     Dosage: 650 MILLIGRAM
     Route: 048
     Dates: start: 20131219, end: 20131219
  28. ACETAMINOPHEN [Concomitant]
     Dosage: 650 MILLIGRAM
     Route: 048
     Dates: start: 20131226, end: 20131226
  29. ACETAMINOPHEN [Concomitant]
     Dosage: 650 MILLIGRAM
     Route: 048
     Dates: start: 20131230, end: 20131230
  30. ACETAMINOPHEN [Concomitant]
     Dosage: 650 MILLIGRAM
     Route: 048
     Dates: start: 20131231, end: 20131231
  31. DIPHENHYDRAMINE [Concomitant]
     Indication: PROPHYLAXIS
     Dosage: 25 MILLIGRAM
     Route: 048
     Dates: start: 20131103, end: 20131103
  32. DIPHENHYDRAMINE [Concomitant]
     Dosage: 25 MILLIGRAM
     Route: 048
     Dates: start: 20131114, end: 20131114
  33. DIPHENHYDRAMINE [Concomitant]
     Dosage: 25 MILLIGRAM
     Route: 048
     Dates: start: 20131129, end: 20131129
  34. DIPHENHYDRAMINE [Concomitant]
     Dosage: 25 MILLIGRAM
     Route: 048
     Dates: start: 20131202, end: 20131202
  35. DIPHENHYDRAMINE [Concomitant]
     Dosage: 25 MILLIGRAM
     Route: 048
     Dates: start: 20131205, end: 20131205
  36. DIPHENHYDRAMINE [Concomitant]
     Dosage: 25 MILLIGRAM
     Route: 048
     Dates: start: 20131209, end: 20131209
  37. DIPHENHYDRAMINE [Concomitant]
     Dosage: 25 MILLIGRAM
     Route: 048
     Dates: start: 20131212, end: 20131212
  38. DIPHENHYDRAMINE [Concomitant]
     Dosage: 25 MILLIGRAM
     Route: 048
     Dates: start: 20131216, end: 20131216
  39. DIPHENHYDRAMINE [Concomitant]
     Dosage: 25 MILLIGRAM
     Route: 048
     Dates: start: 20131219, end: 20131219
  40. DIPHENHYDRAMINE [Concomitant]
     Dosage: 25 MILLIGRAM
     Route: 048
     Dates: start: 20131226, end: 20131226
  41. DIPHENHYDRAMINE [Concomitant]
     Dosage: 25 MILLIGRAM
     Route: 048
     Dates: start: 20131230, end: 20131230
  42. DIPHENHYDRAMINE [Concomitant]
     Dosage: 25 MILLIGRAM
     Route: 048
     Dates: start: 20131231, end: 20131231
  43. POLYETHYLENE GLYCOL [Concomitant]
     Indication: CONSTIPATION
     Dosage: 1 PACKET
     Route: 048
     Dates: start: 20131101, end: 20131111
  44. MAGNESIUM CITRATE [Concomitant]
     Indication: CONSTIPATION
     Dosage: 0.5 BOTTLE
     Route: 048
     Dates: start: 20131101, end: 20131111
  45. MAGNESIUM CITRATE [Concomitant]
     Dosage: 0.5 BOTTLE
     Route: 048
     Dates: start: 20131126
  46. LIDOCAINE [Concomitant]
     Indication: EPISTAXIS
     Dosage: 4 PERCENT
     Route: 061
     Dates: start: 20131109, end: 20131109
  47. LIDOCAINE [Concomitant]
     Indication: PROPHYLAXIS
     Dosage: .4 MILLILITER
     Route: 058
     Dates: start: 20131111, end: 20131111
  48. LIDOCAINE [Concomitant]
     Dosage: 10 MILLILITER
     Route: 058
     Dates: start: 20131125, end: 20131125
  49. LIDOCAINE [Concomitant]
     Dosage: 10 MILLILITER
     Route: 058
     Dates: start: 20131226, end: 20131226
  50. OXYMETAZOLINE [Concomitant]
     Indication: EPISTAXIS
     Dosage: 50 PERCENT
     Route: 061
     Dates: start: 20131109, end: 20131109
  51. PANTOPRAZOLE [Concomitant]
     Indication: HAEMORRHAGE PROPHYLAXIS
     Dosage: 40 MILLIGRAM
     Route: 048
     Dates: start: 20131110, end: 20131110
  52. PANTOPRAZOLE [Concomitant]
     Dosage: 40 MILLIGRAM
     Route: 048
     Dates: start: 20131230
  53. ACYCLOVIR [Concomitant]
     Indication: ANTIVIRAL PROPHYLAXIS
     Dosage: 200 MILLIGRAM
     Route: 048
     Dates: start: 20131125
  54. FLUCONAZOLE [Concomitant]
     Indication: ANTIFUNGAL PROPHYLAXIS
     Dosage: 400 MILLIGRAM
     Route: 048
     Dates: start: 20131125
  55. MOXIFLOXACIN [Concomitant]
     Indication: INFECTION PROPHYLAXIS
     Dosage: 400 MILLIGRAM
     Route: 048
     Dates: start: 20131231
  56. PACKED RED BLOOD CELLS [Concomitant]
     Indication: SYNCOPE
     Dosage: 7 UNITS
     Route: 041
     Dates: start: 20130925
  57. PACKED RED BLOOD CELLS [Concomitant]
     Indication: ANAEMIA
     Dosage: 3 UNITS
     Route: 041
     Dates: start: 20131103
  58. PACKED RED BLOOD CELLS [Concomitant]
     Dosage: 2 UNITS
     Route: 041
     Dates: start: 20131109
  59. PACKED RED BLOOD CELLS [Concomitant]
     Dosage: 1 UNIT
     Route: 041
     Dates: start: 20131110
  60. PACKED RED BLOOD CELLS [Concomitant]
     Dosage: 2 UNITS
     Route: 041
     Dates: start: 20131129
  61. PACKED RED BLOOD CELLS [Concomitant]
     Dosage: 2 UNITS
     Route: 041
     Dates: start: 20131205
  62. PACKED RED BLOOD CELLS [Concomitant]
     Dosage: 2 UNITS
     Route: 041
     Dates: start: 20131216
  63. PACKED RED BLOOD CELLS [Concomitant]
     Dosage: 2 UNITS
     Route: 041
     Dates: start: 20131226
  64. PACKED RED BLOOD CELLS [Concomitant]
     Dosage: 2 UNITS
     Route: 041
     Dates: start: 20131230, end: 20131230
  65. PACKED RED BLOOD CELLS [Concomitant]
     Dosage: 2 UNITS
     Route: 041
     Dates: start: 20131230, end: 20131230
  66. PACKED RED BLOOD CELLS [Concomitant]
     Dosage: 2 UNITS
     Route: 041
     Dates: start: 20131231, end: 20131231
  67. PLATELETS [Concomitant]
     Indication: THROMBOCYTOPENIA
     Dosage: 1 UNIT
     Route: 041
     Dates: start: 20130926
  68. PLATELETS [Concomitant]
     Dosage: 1 UNIT
     Route: 041
     Dates: start: 20131109
  69. PLATELETS [Concomitant]
     Dosage: 1 UNIT
     Route: 041
     Dates: start: 20131114
  70. PLATELETS [Concomitant]
     Dosage: 1 UNIT
     Route: 041
     Dates: start: 20131202
  71. PLATELETS [Concomitant]
     Dosage: 1 UNIT
     Route: 041
     Dates: start: 20131209
  72. PLATELETS [Concomitant]
     Dosage: 1 UNIT
     Route: 041
     Dates: start: 20131212
  73. PLATELETS [Concomitant]
     Dosage: 1 UNIT
     Route: 041
     Dates: start: 20131219

REACTIONS (2)
  - Syncope [Recovered/Resolved]
  - Febrile neutropenia [Recovered/Resolved]
